FAERS Safety Report 24351564 (Version 1)
Quarter: 2024Q3

REPORT INFORMATION
  Report Type: Spontaneous
  Country: CN (occurrence: CN)
  Receive Date: 20240923
  Receipt Date: 20240923
  Transmission Date: 20241017
  Serious: No
  Sender: ROCHE
  Company Number: CN-ROCHE-3554421

PATIENT
  Age: 60 Year
  Sex: Female
  Weight: 54.0 kg

DRUGS (1)
  1. HERCEPTIN [Suspect]
     Active Substance: TRASTUZUMAB
     Indication: Endometrial adenocarcinoma
     Route: 041
     Dates: start: 20240408, end: 20240408

REACTIONS (3)
  - Chills [Recovering/Resolving]
  - Off label use [Unknown]
  - Cyanosis [Recovering/Resolving]

NARRATIVE: CASE EVENT DATE: 20240408
